FAERS Safety Report 23188322 (Version 3)
Quarter: 2024Q2

REPORT INFORMATION
  Report Type: Spontaneous
  Country: US (occurrence: US)
  Receive Date: 20231115
  Receipt Date: 20240520
  Transmission Date: 20240716
  Serious: No
  Sender: FDA-Public Use
  Company Number: US-PFIZER INC-PV202300184327

PATIENT
  Age: 87 Year
  Sex: Female

DRUGS (1)
  1. IBRANCE [Suspect]
     Active Substance: PALBOCICLIB
     Dosage: 100 MG, CYCLIC (WITH OR WITHOUT FOOD ON DAYS 1-21 EVERY 28 DAYS. DO NOT TAKE ON DAYS 22-28)
     Route: 048

REACTIONS (1)
  - Confusional state [Unknown]
